FAERS Safety Report 19398771 (Version 1)
Quarter: 2021Q2

REPORT INFORMATION
  Report Type: Spontaneous
  Country: US (occurrence: US)
  Receive Date: 20210610
  Receipt Date: 20210610
  Transmission Date: 20210717
  Serious: No
  Sender: FDA-Public Use
  Company Number: None

PATIENT
  Age: 65 Year
  Sex: Male
  Weight: 116 kg

DRUGS (2)
  1. DORNASE ALFA, RDNA [Suspect]
     Active Substance: DORNASE ALFA
     Indication: EMPYEMA
     Dates: start: 20210606, end: 20210606
  2. ALTEPLASE. [Suspect]
     Active Substance: ALTEPLASE
     Indication: EMPYEMA
     Dates: start: 20210606, end: 20210606

REACTIONS (4)
  - Bronchospasm [None]
  - Anaphylactic reaction [None]
  - Oxygen consumption increased [None]
  - Respiratory depression [None]

NARRATIVE: CASE EVENT DATE: 20210606
